FAERS Safety Report 15409571 (Version 4)
Quarter: 2019Q4

REPORT INFORMATION
  Report Type: Report from Study
  Country: US (occurrence: US)
  Receive Date: 20180920
  Receipt Date: 20191009
  Transmission Date: 20200122
  Serious: Yes (Hospitalization)
  Sender: FDA-Public Use
  Company Number: US-ACTELION-A-NJ2018-169687

PATIENT
  Sex: Male
  Weight: 92.97 kg

DRUGS (5)
  1. DILTIAZEM. [Concomitant]
     Active Substance: DILTIAZEM
  2. VELETRI [Suspect]
     Active Substance: EPOPROSTENOL
     Indication: PULMONARY ARTERIAL HYPERTENSION
     Dosage: 23 NG/KG, PER MIN
     Route: 042
  3. ADCIRCA [Concomitant]
     Active Substance: TADALAFIL
  4. XARELTO [Concomitant]
     Active Substance: RIVAROXABAN
  5. REVATIO [Concomitant]
     Active Substance: SILDENAFIL CITRATE

REACTIONS (9)
  - Catheter management [Unknown]
  - Flushing [Unknown]
  - Vascular device infection [Unknown]
  - Arthralgia [Unknown]
  - Urticaria [Not Recovered/Not Resolved]
  - Complication associated with device [Unknown]
  - Catheter site infection [Unknown]
  - Headache [Unknown]
  - Pain in jaw [Unknown]
